FAERS Safety Report 6991422-3 (Version None)
Quarter: 2010Q3

REPORT INFORMATION
  Report Type: 
  Country: None (occurrence: None)
  Receive Date: 20100916
  Receipt Date: 20090824
  Transmission Date: 20110219
  Serious: No
  Sender: FDA-Public Use
  Company Number: US-WYE-H10708109

PATIENT
  Sex: Female

DRUGS (5)
  1. PRISTIQ [Suspect]
     Indication: DEPRESSION
     Route: 048
     Dates: start: 20090824
  2. GLATIRAMER ACETATE [Concomitant]
  3. ADDERALL 10 [Concomitant]
  4. BACLOFEN [Concomitant]
  5. YASMIN [Concomitant]

REACTIONS (1)
  - FLATULENCE [None]
